FAERS Safety Report 10369126 (Version 2)
Quarter: 2014Q3

REPORT INFORMATION
  Report Type: Spontaneous
  Country: US (occurrence: US)
  Receive Date: 20140807
  Receipt Date: 20140819
  Transmission Date: 20150326
  Serious: Yes (Hospitalization)
  Sender: FDA-Public Use
  Company Number: US-PFIZER INC-2014214652

PATIENT
  Age: 76 Year
  Sex: Male

DRUGS (9)
  1. WARFARIN SODIUM. [Concomitant]
     Active Substance: WARFARIN SODIUM
  2. PEPCID [Concomitant]
     Active Substance: FAMOTIDINE
  3. SIMVASTATIN. [Concomitant]
     Active Substance: SIMVASTATIN
  4. NEURONTIN [Concomitant]
     Active Substance: GABAPENTIN
  5. ASPIRIN. [Concomitant]
     Active Substance: ASPIRIN
  6. LIPITOR [Suspect]
     Active Substance: ATORVASTATIN CALCIUM
     Dosage: 40 MG, DAILY
     Route: 065
  7. COREG [Suspect]
     Active Substance: CARVEDILOL
     Indication: CARDIAC FAILURE
     Dosage: 12.5 MG, 2X/DAY
     Route: 048
     Dates: start: 2009
  8. COREG [Suspect]
     Active Substance: CARVEDILOL
     Indication: BLOOD PRESSURE
  9. LOSARTAN POTASSIUM. [Concomitant]
     Active Substance: LOSARTAN POTASSIUM

REACTIONS (8)
  - Throat irritation [Recovered/Resolved]
  - Pain in extremity [Recovered/Resolved]
  - Musculoskeletal pain [Unknown]
  - Choking sensation [Recovered/Resolved]
  - Myocardial infarction [Unknown]
  - Hypoacusis [Not Recovered/Not Resolved]
  - Dementia Alzheimer^s type [Unknown]
  - Memory impairment [Unknown]
